FAERS Safety Report 19880297 (Version 1)
Quarter: 2021Q3

REPORT INFORMATION
  Report Type: Spontaneous
  Country: US (occurrence: US)
  Receive Date: 20210925
  Receipt Date: 20210925
  Transmission Date: 20211014
  Serious: No
  Sender: FDA-Public Use
  Company Number: US-009507513-2109USA005470

PATIENT
  Sex: Female

DRUGS (1)
  1. INTRON A [Suspect]
     Active Substance: INTERFERON ALFA-2B
     Indication: PLASMA CELL MYELOMA
     Dosage: UNK

REACTIONS (3)
  - Off label use [Unknown]
  - No adverse event [Unknown]
  - Drug effective for unapproved indication [Unknown]
